FAERS Safety Report 6241083-6 (Version None)
Quarter: 2009Q2

REPORT INFORMATION
  Report Type: 
  Country: None (occurrence: None)
  Receive Date: 20090619
  Receipt Date: 20090619
  Transmission Date: 20091009
  Serious: Yes (Other)
  Sender: FDA-Public Use
  Company Number: None

PATIENT
  Age: 29 Year
  Sex: Male
  Weight: 85.2762 kg

DRUGS (4)
  1. ROGAINE FOAM 5% MINOXIDIL [Suspect]
     Indication: ALOPECIA
     Dosage: 5% MINOXIDIL TWICE A DAY TOP ABOUT 1 MONTH
     Route: 061
  2. BENADRYL [Concomitant]
  3. ACIPHEX [Concomitant]
  4. TYLENOL (CAPLET) [Concomitant]

REACTIONS (3)
  - DEPRESSION [None]
  - HYPERSOMNIA [None]
  - SLUGGISHNESS [None]
